FAERS Safety Report 21584989 (Version 1)
Quarter: 2022Q4

REPORT INFORMATION
  Report Type: Spontaneous
  Country: FR (occurrence: FR)
  Receive Date: 20221111
  Receipt Date: 20221111
  Transmission Date: 20230113
  Serious: Yes (Other)
  Sender: FDA-Public Use
  Company Number: None

PATIENT
  Age: 61 Year
  Sex: Male

DRUGS (4)
  1. PANTOPRAZOLE [Suspect]
     Active Substance: PANTOPRAZOLE
     Indication: Prophylaxis against gastrointestinal ulcer
     Dosage: UNIT DOSE :20 MG, FREQUENCY TIME 1 DAYS ,DURATION 5 DAYS.
     Route: 065
     Dates: start: 20211209, end: 20211214
  2. ACETAMINOPHEN [Suspect]
     Active Substance: ACETAMINOPHEN
     Indication: Pain
     Dosage: UNIT DOSE :2 GRAM, FREQUENCY TIME 1 DAYS ,DURATION 5 DAYS.
     Route: 065
     Dates: start: 20211209, end: 20211214
  3. KETOPROFEN [Suspect]
     Active Substance: KETOPROFEN
     Indication: Back pain
     Dosage: UNIT DOSE :200 MG , FREQUENCY TIME 1 DAYS ,DURATION 5 DAYS.
     Route: 065
     Dates: start: 20211209, end: 20211214
  4. LOVENOX [Suspect]
     Active Substance: ENOXAPARIN SODIUM
     Indication: Thrombosis prophylaxis
     Dosage: UNIT DOSE :4000 IU, FREQUENCY TIME 1 DAYS ,DURATION 6 DAYS.
     Route: 065
     Dates: start: 20211208, end: 20211214

REACTIONS (2)
  - Hepatic cytolysis [Recovered/Resolved]
  - Cholestasis [Recovered/Resolved]

NARRATIVE: CASE EVENT DATE: 20211214
